FAERS Safety Report 23378186 (Version 2)
Quarter: 2024Q1

REPORT INFORMATION
  Report Type: Spontaneous
  Country: JP (occurrence: JP)
  Receive Date: 20240108
  Receipt Date: 20240119
  Transmission Date: 20240409
  Serious: No
  Sender: FDA-Public Use
  Company Number: JP-AMNEAL PHARMACEUTICALS-2023-AMRX-04646

PATIENT

DRUGS (5)
  1. ONGENTYS [Suspect]
     Active Substance: OPICAPONE
     Indication: Parkinson^s disease
     Dosage: UNK
     Route: 048
     Dates: start: 20231218
  2. BENSERAZIDE HYDROCHLORIDE\LEVODOPA [Concomitant]
     Active Substance: BENSERAZIDE HYDROCHLORIDE\LEVODOPA
     Indication: Product used for unknown indication
     Dosage: TABLET
     Route: 065
  3. MESTINON [Concomitant]
     Active Substance: PYRIDOSTIGMINE BROMIDE
     Indication: Product used for unknown indication
     Dosage: TABLET
     Route: 065
  4. MEPENZOLATE BROMIDE [Concomitant]
     Active Substance: MEPENZOLATE BROMIDE
     Indication: Product used for unknown indication
     Dosage: TABLET, UNK
     Route: 065
  5. PREDONINE [Concomitant]
     Active Substance: PREDNISOLONE
     Indication: Product used for unknown indication
     Dosage: TABLET, UNK
     Route: 065

REACTIONS (3)
  - Herpes zoster [Recovered/Resolved]
  - Anxiety [Unknown]
  - Wrong technique in product usage process [Unknown]

NARRATIVE: CASE EVENT DATE: 20231220
